FAERS Safety Report 21967155 (Version 1)
Quarter: 2023Q1

REPORT INFORMATION
  Report Type: Spontaneous
  Country: BE (occurrence: BE)
  Receive Date: 20230208
  Receipt Date: 20230208
  Transmission Date: 20230417
  Serious: Yes (Life-Threatening, Hospitalization)
  Sender: FDA-Public Use
  Company Number: BE-MYLANLABS-2023M1012684

PATIENT
  Age: 69 Year
  Sex: Male

DRUGS (9)
  1. EPINEPHRINE [Suspect]
     Active Substance: EPINEPHRINE
     Indication: Cardiogenic shock
     Dosage: UNK, RECEIVED INFUSION AND INITIAL DOSE UNKNOWN
     Route: 042
  2. EPINEPHRINE [Suspect]
     Active Substance: EPINEPHRINE
     Dosage: 1 MICROGRAM/KILOGRAM, QMINUTE (RECEIVED THROUGH DRIP)
     Route: 042
  3. EPINEPHRINE [Suspect]
     Active Substance: EPINEPHRINE
     Dosage: 2 MICROGRAM/KILOGRAM, QMINUTE
     Route: 042
  4. MILRINONE [Suspect]
     Active Substance: MILRINONE
     Indication: Cardiogenic shock
     Dosage: UNK, RECEIVED INFUSION
     Route: 042
  5. NOREPINEPHRINE [Suspect]
     Active Substance: NOREPINEPHRINE
     Indication: Cardiogenic shock
     Dosage: UNK, RECEIVED INFUSION AND INITIAL DOSE UNKNOWN
     Route: 042
  6. NOREPINEPHRINE [Suspect]
     Active Substance: NOREPINEPHRINE
     Dosage: 0.3 MICROGRAM/KILOGRAM, QMINUTE
     Route: 042
  7. MOLSIDOMINE [Suspect]
     Active Substance: MOLSIDOMINE
     Indication: Cardiogenic shock
     Dosage: UNK, RECEIVED INFUSION
     Route: 042
  8. LABETALOL [Suspect]
     Active Substance: LABETALOL\LABETALOL HYDROCHLORIDE
     Indication: Cardiogenic shock
     Dosage: UNK, RECEIVED INFUSION
     Route: 042
  9. HEPARIN [Concomitant]
     Active Substance: HEPARIN SODIUM
     Indication: Anticoagulant therapy
     Dosage: UNK
     Route: 065

REACTIONS (1)
  - Drug ineffective [Unknown]
